FAERS Safety Report 19795748 (Version 1)
Quarter: 2021Q3

REPORT INFORMATION
  Report Type: Spontaneous
  Country: US (occurrence: US)
  Receive Date: 20210901
  Receipt Date: 20210901
  Transmission Date: 20211014
  Serious: Yes (Hospitalization, Other)
  Sender: FDA-Public Use
  Company Number: None

PATIENT
  Age: 24 Year
  Sex: Female
  Weight: 102.06 kg

DRUGS (3)
  1. SEROQUEL [Suspect]
     Active Substance: QUETIAPINE FUMARATE
  2. VISTARIL [Suspect]
     Active Substance: HYDROXYZINE PAMOATE
  3. LAMICTAL [Suspect]
     Active Substance: LAMOTRIGINE

REACTIONS (3)
  - Anaemia [None]
  - Caesarean section [None]
  - Gestational hypertension [None]

NARRATIVE: CASE EVENT DATE: 20210408
